FAERS Safety Report 5775232-0 (Version None)
Quarter: 2008Q2

REPORT INFORMATION
  Report Type: 
  Country: None (occurrence: None)
  Receive Date: 20080616
  Receipt Date: 20080616
  Transmission Date: 20081010
  Serious: Yes (Other)
  Sender: FDA-Public Use
  Company Number: None

PATIENT
  Sex: Female
  Weight: 26 kg

DRUGS (1)
  1. PRECEDEX [Suspect]
     Indication: WEANING FAILURE
     Dosage: CONTINUOUS INFUSION CONTINUOUS IV
     Route: 042
     Dates: start: 20080601, end: 20080606

REACTIONS (2)
  - MENTAL STATUS CHANGES [None]
  - SPEECH DISORDER [None]
